FAERS Safety Report 26149882 (Version 1)
Quarter: 2025Q4

REPORT INFORMATION
  Report Type: Spontaneous
  Country: US (occurrence: US)
  Receive Date: 20251212
  Receipt Date: 20251212
  Transmission Date: 20260118
  Serious: No
  Sender: ROCHE
  Company Number: US-ROCHE-10000450062

PATIENT
  Age: 15 Year
  Sex: Male

DRUGS (3)
  1. XOLAIR [Suspect]
     Active Substance: OMALIZUMAB
     Indication: Food allergy
     Dosage: 525MG IN THE FORM OF (1) 300MG, (1) 150MG, (1) 75MG
     Route: 058
     Dates: start: 202401
  2. XOLAIR [Suspect]
     Active Substance: OMALIZUMAB
     Indication: Asthma exercise induced
  3. XOLAIR [Suspect]
     Active Substance: OMALIZUMAB
     Indication: Anaphylaxis prophylaxis

REACTIONS (4)
  - Product dose omission issue [Unknown]
  - Device leakage [Unknown]
  - No adverse event [Unknown]
  - Wrong technique in device usage process [Unknown]

NARRATIVE: CASE EVENT DATE: 20251105
